FAERS Safety Report 4519570-8 (Version None)
Quarter: 2004Q4

REPORT INFORMATION
  Report Type: 
  Country: None (occurrence: None)
  Receive Date: 20041123
  Receipt Date: 20041109
  Transmission Date: 20050328
  Serious: Yes (Death)
  Sender: FDA-Public Use
  Company Number: 240472

PATIENT
  Age: 14 Year
  Sex: Male
  Weight: 60 kg

DRUGS (2)
  1. NOVOSEVEN [Suspect]
     Indication: PULMONARY ALVEOLAR HAEMORRHAGE
     Dosage: 80 UG/KG Q 3 H
     Dates: start: 20040706, end: 20040706
  2. NOVOSEVEN [Suspect]
     Indication: PULMONARY ALVEOLAR HAEMORRHAGE
     Dosage: 80 UG/KG Q 3 H
     Dates: start: 20040716, end: 20040717

REACTIONS (2)
  - HYPOXIC ENCEPHALOPATHY [None]
  - RESPIRATORY FAILURE [None]
